FAERS Safety Report 4957373-0 (Version None)
Quarter: 2006Q1

REPORT INFORMATION
  Report Type: 
  Country: None (occurrence: None)
  Receive Date: 20060327
  Receipt Date: 20060316
  Transmission Date: 20060701
  Serious: Yes (Other)
  Sender: FDA-Public Use
  Company Number: 2002-09-1976

PATIENT
  Age: 46 Year
  Sex: Male
  Weight: 68.0396 kg

DRUGS (6)
  1. PEG-INTRON [Suspect]
     Dates: start: 20011101, end: 20020412
  2. REBETOL [Suspect]
     Dosage: ORAL
     Route: 048
     Dates: start: 20011101, end: 20020419
  3. ALCOHOL [Suspect]
  4. UNSPECIFIED THERAPEUTIC AGENT ORALS [Suspect]
     Dosage: ^SOME PILLS^, ORAL
     Route: 048
     Dates: start: 20020425, end: 20020425
  5. WELLBUTRIN [Suspect]
     Indication: DEPRESSION
  6. ZYPREXA [Suspect]
     Indication: PSYCHOTIC DISORDER

REACTIONS (23)
  - ALCOHOLISM [None]
  - ALOPECIA [None]
  - ANOREXIA [None]
  - CONSTIPATION [None]
  - DEPRESSION [None]
  - DIARRHOEA [None]
  - DYSPNOEA [None]
  - GENERAL PHYSICAL CONDITION ABNORMAL [None]
  - HEADACHE [None]
  - HOMICIDE [None]
  - IMPAIRED SELF-CARE [None]
  - IMPULSE-CONTROL DISORDER [None]
  - INJURY [None]
  - IRRITABILITY [None]
  - MENTAL DISORDER [None]
  - NAUSEA [None]
  - NIGHT SWEATS [None]
  - NIGHTMARE [None]
  - PAIN [None]
  - PSYCHOTIC DISORDER [None]
  - SUICIDE ATTEMPT [None]
  - VISUAL ACUITY REDUCED [None]
  - VOMITING [None]
